FAERS Safety Report 10433083 (Version 3)
Quarter: 2014Q4

REPORT INFORMATION
  Report Type: Other
  Country: IT (occurrence: IT)
  Receive Date: 20140905
  Receipt Date: 20141107
  Transmission Date: 20150528
  Serious: Yes (Other)
  Sender: FDA-Public Use
  Company Number: IT-VERTEX PHARMACEUTICALS-2014-003791

PATIENT
  Age: 43 Year
  Sex: Female

DRUGS (6)
  1. INCIVO [Suspect]
     Active Substance: TELAPREVIR
     Indication: HEPATIC CIRRHOSIS
     Dosage: 2250 MG, QD
     Route: 048
     Dates: start: 20131206, end: 20140228
  2. PEGASYS [Suspect]
     Active Substance: PEGINTERFERON ALFA-2A
     Dosage: 135 ?G, UNK
     Route: 058
     Dates: start: 20140102, end: 20140310
  3. PEGASYS [Suspect]
     Active Substance: PEGINTERFERON ALFA-2A
     Indication: HEPATIC CIRRHOSIS
     Dosage: 135 ?G, QW
     Route: 058
     Dates: start: 20131206
  4. COPEGUS [Suspect]
     Active Substance: RIBAVIRIN
     Dosage: 400 MG, QD
     Route: 048
     Dates: start: 20140102
  5. COPEGUS [Suspect]
     Active Substance: RIBAVIRIN
     Indication: HEPATIC CIRRHOSIS
     Dosage: 1200 MG, QD
     Route: 048
     Dates: start: 20131206
  6. LOSARTAN [Concomitant]
     Active Substance: LOSARTAN
     Indication: PRODUCT USED FOR UNKNOWN INDICATION
     Dosage: 100 MG, UNK
     Route: 065

REACTIONS (2)
  - Rash generalised [Recovering/Resolving]
  - Viral load increased [Unknown]

NARRATIVE: CASE EVENT DATE: 20140310
